FAERS Safety Report 7522965-1 (Version None)
Quarter: 2011Q2

REPORT INFORMATION
  Report Type: 
  Country: None (occurrence: None)
  Receive Date: 20110603
  Receipt Date: 20110526
  Transmission Date: 20111010
  Serious: Yes (Death, Other)
  Sender: FDA-Public Use
  Company Number: JP-AMGEN-JPNCT2011028582

PATIENT
  Age: 70 Year
  Sex: Male
  Weight: 54 kg

DRUGS (11)
  1. PANITUMUMAB [Suspect]
     Indication: COLORECTAL CANCER
     Dosage: 6 MG/KG, Q2WK
     Route: 041
     Dates: start: 20100729, end: 20100902
  2. LEUCOVORIN CALCIUM [Concomitant]
     Indication: COLORECTAL CANCER
     Route: 041
     Dates: start: 20100729, end: 20100902
  3. DECADRON [Concomitant]
     Dosage: UNK
     Route: 042
  4. GRANISETRON HCL [Concomitant]
     Dosage: UNK
     Route: 042
  5. ELASPOL [Concomitant]
     Dosage: UNK
     Route: 042
  6. IRINOTECAN HCL [Concomitant]
     Indication: COLORECTAL CANCER
     Route: 041
     Dates: start: 20100729, end: 20100902
  7. FLUOROURACIL [Concomitant]
     Indication: COLORECTAL CANCER
     Route: 040
     Dates: start: 20100729, end: 20100902
  8. CORTICOSTEROIDS [Concomitant]
     Indication: PROPHYLAXIS
     Dosage: UNK
     Route: 065
  9. DORIPENEM MONOHYDRATE [Concomitant]
     Dosage: UNK
     Route: 042
  10. FLUOROURACIL [Concomitant]
     Route: 041
     Dates: start: 20100729, end: 20100902
  11. ANTIHISTAMINES [Concomitant]
     Indication: PROPHYLAXIS
     Dosage: UNK
     Route: 065

REACTIONS (4)
  - DERMATITIS [None]
  - DECREASED APPETITE [None]
  - PNEUMONIA [None]
  - NEUTROPHIL COUNT DECREASED [None]
